FAERS Safety Report 15414513 (Version 1)
Quarter: 2018Q3

REPORT INFORMATION
  Report Type: Other
  Country: SK (occurrence: SK)
  Receive Date: 20180921
  Receipt Date: 20180921
  Transmission Date: 20181010
  Serious: Yes (Death, Hospitalization)
  Sender: FDA-Public Use
  Company Number: SK-PROVELL PHARMACEUTICALS-2055207

PATIENT
  Age: 81 Year
  Sex: Female

DRUGS (1)
  1. EUTHYROX [Suspect]
     Active Substance: LEVOTHYROXINE SODIUM
     Indication: PRODUCT USED FOR UNKNOWN INDICATION

REACTIONS (5)
  - Renal failure [Fatal]
  - Acute kidney injury [Fatal]
  - Anuria [Fatal]
  - Lactic acidosis [Fatal]
  - Urinary retention [Fatal]
